FAERS Safety Report 7529070-9 (Version None)
Quarter: 2011Q2

REPORT INFORMATION
  Report Type: 
  Country: None (occurrence: None)
  Receive Date: 20110607
  Receipt Date: 20110524
  Transmission Date: 20111010
  Serious: Yes (Hospitalization)
  Sender: FDA-Public Use
  Company Number: FR-JNJFOC-20110404942

PATIENT
  Age: 37 Year
  Sex: Male

DRUGS (1)
  1. REMICADE [Suspect]
     Indication: PSORIASIS
     Route: 042
     Dates: start: 20090101

REACTIONS (5)
  - TACHYCARDIA [None]
  - LUNG DISORDER [None]
  - PYREXIA [None]
  - CHEST PAIN [None]
  - INTERSTITIAL LUNG DISEASE [None]
